FAERS Safety Report 11060841 (Version 3)
Quarter: 2015Q3

REPORT INFORMATION
  Report Type: Report from Study
  Country: ZA (occurrence: ZA)
  Receive Date: 20150424
  Receipt Date: 20150721
  Transmission Date: 20151125
  Serious: Yes (Death, Hospitalization, Other)
  Sender: FDA-Public Use
  Company Number: ZA-AMGEN-ZAFSL2015038805

PATIENT
  Age: 64 Year
  Sex: Male

DRUGS (2)
  1. BICARBONATE [Concomitant]
     Active Substance: BICARBONATE ION
  2. SENSIPAR [Suspect]
     Active Substance: CINACALCET HYDROCHLORIDE
     Indication: PRODUCT USED FOR UNKNOWN INDICATION
     Dosage: 60 MG, QD
     Route: 048

REACTIONS (17)
  - Heart rate increased [Unknown]
  - Spinal osteoarthritis [Unknown]
  - Acidosis [Unknown]
  - Pneumothorax [Unknown]
  - Hip arthroplasty [Unknown]
  - Vomiting [Recovered/Resolved]
  - Respiratory distress [Unknown]
  - Incarcerated hernia [Unknown]
  - Intestinal obstruction [Fatal]
  - Accessory spleen [Unknown]
  - Blood pressure abnormal [Unknown]
  - Rib fracture [Unknown]
  - Localised intraabdominal fluid collection [Unknown]
  - Abdominal distension [Unknown]
  - Multi-organ failure [Fatal]
  - Peripheral coldness [Unknown]
  - Abdominal pain [Recovered/Resolved]

NARRATIVE: CASE EVENT DATE: 20150312
